FAERS Safety Report 17883827 (Version 12)
Quarter: 2020Q4

REPORT INFORMATION
  Report Type: Report from Study
  Country: None (occurrence: CN)
  Receive Date: 20200611
  Receipt Date: 20201109
  Transmission Date: 20210113
  Serious: Yes (Hospitalization)
  Sender: FDA-Public Use
  Company Number: CN-CELLTRION, INC.-2085646

PATIENT
  Age: 56 Year
  Sex: Female
  Weight: 60 kg

DRUGS (7)
  1. DEXAMETHASONE. [Concomitant]
     Active Substance: DEXAMETHASONE
  2. ALFACALCIDOL [Concomitant]
     Active Substance: ALFACALCIDOL
  3. PREDNISONE ACETATE [Concomitant]
     Active Substance: PREDNISONE ACETATE
  4. METHOTREXATE. [Concomitant]
     Active Substance: METHOTREXATE
  5. OXAPROZIN. [Concomitant]
     Active Substance: OXAPROZIN
  6. FOLIC ACID. [Concomitant]
     Active Substance: FOLIC ACID
  7. TRUXIMA [Suspect]
     Active Substance: RITUXIMAB-ABBS

REACTIONS (1)
  - Arthritis bacterial [Unknown]

NARRATIVE: CASE EVENT DATE: 20200601
